FAERS Safety Report 18010283 (Version 1)
Quarter: 2020Q3

REPORT INFORMATION
  Report Type: Spontaneous
  Country: US (occurrence: US)
  Receive Date: 20200710
  Receipt Date: 20200710
  Transmission Date: 20201103
  Serious: Yes (Other)
  Sender: FDA-Public Use
  Company Number: NVSC2020US194409

PATIENT
  Age: 63 Year
  Sex: Female

DRUGS (2)
  1. METHOTREXATE. [Suspect]
     Active Substance: METHOTREXATE
     Indication: LYMPHOMA
     Dosage: UNK
     Route: 013
  2. MANNITOL. [Suspect]
     Active Substance: MANNITOL
     Indication: LYMPHOMA
     Dosage: UNK
     Route: 013

REACTIONS (2)
  - Maculopathy [Unknown]
  - Subretinal fluid [Recovered/Resolved]
